FAERS Safety Report 12202088 (Version 2)
Quarter: 2016Q3

REPORT INFORMATION
  Report Type: Spontaneous
  Country: DE (occurrence: DE)
  Receive Date: 20160322
  Receipt Date: 20160805
  Transmission Date: 20161109
  Serious: Yes (Other)
  Sender: FDA-Public Use
  Company Number: DE-TEVA-642847GER

PATIENT
  Age: 74 Year
  Sex: Female
  Weight: 65 kg

DRUGS (4)
  1. METOPROLOL-RATIOPHARM 100 MG TABLETTEN [Suspect]
     Active Substance: METOPROLOL
     Dosage: 100 MILLIGRAM DAILY;
     Route: 048
     Dates: start: 201603, end: 201606
  2. METOPROLOL-RATIOPHARM 100 MG TABLETTEN [Suspect]
     Active Substance: METOPROLOL
     Dosage: 150 MILLIGRAM DAILY;
     Route: 048
     Dates: start: 201607
  3. TIMOPHTAL [Concomitant]
     Indication: INTRAOCULAR PRESSURE INCREASED
  4. METOPROLOL-RATIOPHARM 100 MG TABLETTEN [Suspect]
     Active Substance: METOPROLOL
     Indication: HYPERTENSION
     Dosage: 200 MILLIGRAM DAILY;
     Route: 048
     Dates: start: 2001

REACTIONS (2)
  - Hypotension [Not Recovered/Not Resolved]
  - Optic nerve injury [Not Recovered/Not Resolved]

NARRATIVE: CASE EVENT DATE: 201603
